FAERS Safety Report 10663808 (Version 4)
Quarter: 2015Q2

REPORT INFORMATION
  Report Type: Report from Study
  Country: BR (occurrence: BR)
  Receive Date: 20141219
  Receipt Date: 20150410
  Transmission Date: 20150821
  Serious: Yes (Death, Hospitalization, Other)
  Sender: FDA-Public Use
  Company Number: BR-ROCHE-1452670

PATIENT
  Age: 59 Year
  Sex: Male

DRUGS (4)
  1. MORPHINE [Concomitant]
     Active Substance: MORPHINE
  2. AVASTIN [Suspect]
     Active Substance: BEVACIZUMAB
     Indication: COLORECTAL CANCER
     Route: 065
     Dates: start: 20140730
  3. BACTRIM [Suspect]
     Active Substance: SULFAMETHOXAZOLE\TRIMETHOPRIM
     Indication: INFLUENZA
     Route: 065
  4. DIPYRONE [Concomitant]
     Active Substance: DIPYRONE

REACTIONS (19)
  - Hypophagia [Unknown]
  - Hand fracture [Not Recovered/Not Resolved]
  - Nasal pruritus [Unknown]
  - Blood pressure decreased [Unknown]
  - Cardiac arrest [Fatal]
  - Dyspepsia [Unknown]
  - Influenza [Unknown]
  - Malaise [Unknown]
  - Syncope [Recovered/Resolved]
  - Nasopharyngitis [Unknown]
  - Hypersensitivity [Unknown]
  - Diarrhoea [Not Recovered/Not Resolved]
  - Respiratory arrest [Unknown]
  - Asthenia [Not Recovered/Not Resolved]
  - Pruritus [Unknown]
  - Confusional state [Unknown]
  - Nausea [Unknown]
  - Vomiting [Not Recovered/Not Resolved]
  - Throat irritation [Unknown]

NARRATIVE: CASE EVENT DATE: 20140818
